FAERS Safety Report 8876839 (Version 2)
Quarter: 2012Q4

REPORT INFORMATION
  Report Type: 
  Country: JP (occurrence: JP)
  Receive Date: 20121030
  Receipt Date: 20121220
  Transmission Date: 20130627
  Serious: Yes (Hospitalization)
  Sender: FDA-Public Use
  Company Number: JP-WATSON-2012-18307

PATIENT
  Age: 72 Year
  Sex: Male
  Weight: 63 kg

DRUGS (2)
  1. GEMCITABINE [Suspect]
     Indication: BLADDER CANCER
     Dosage: UNK
     Route: 065
     Dates: start: 201109
  2. CISPLATIN [Suspect]
     Indication: BLADDER CANCER
     Dosage: UNK
     Route: 065
     Dates: start: 201109

REACTIONS (1)
  - Renal salt-wasting syndrome [Recovered/Resolved]
